FAERS Safety Report 15877799 (Version 2)
Quarter: 2019Q1

REPORT INFORMATION
  Report Type: Spontaneous
  Country: US (occurrence: US)
  Receive Date: 20190128
  Receipt Date: 20190205
  Transmission Date: 20190417
  Serious: Yes (Other)
  Sender: FDA-Public Use
  Company Number: US-AMGEN-USASP2019010885

PATIENT
  Age: 75 Year
  Sex: Female

DRUGS (2)
  1. PROLIA [Suspect]
     Active Substance: DENOSUMAB
     Indication: OSTEOPENIA
     Dosage: UNK UNK, Q6MO
     Route: 065
     Dates: start: 201810
  2. PROLIA [Suspect]
     Active Substance: DENOSUMAB
     Indication: OSTEOPOROSIS
     Dosage: UNK, Q6MO
     Route: 065
     Dates: start: 201706

REACTIONS (8)
  - Wound infection [Recovered/Resolved]
  - Scar [Unknown]
  - Venous operation [Unknown]
  - Rash [Unknown]
  - Cystitis [Unknown]
  - Impaired healing [Unknown]
  - Cellulitis [Unknown]
  - Pruritus [Unknown]

NARRATIVE: CASE EVENT DATE: 2017
